FAERS Safety Report 19073178 (Version 4)
Quarter: 2021Q4

REPORT INFORMATION
  Report Type: Spontaneous
  Country: US (occurrence: US)
  Receive Date: 20210330
  Receipt Date: 20211013
  Transmission Date: 20220303
  Serious: Yes (Hospitalization, Other)
  Sender: FDA-Public Use
  Company Number: US-SA-2019SA283862

PATIENT
  Age: 55 Year
  Sex: Male

DRUGS (4)
  1. CAPRELSA [Suspect]
     Active Substance: VANDETANIB
     Indication: Neoplasm malignant
     Dosage: 200 MG, QD
     Route: 048
     Dates: start: 20190910, end: 20210310
  2. CAPRELSA [Suspect]
     Active Substance: VANDETANIB
     Indication: Thyroid cancer
     Dosage: 100 MG, QD
     Route: 048
     Dates: start: 20190910
  3. PREGABALIN [Concomitant]
     Active Substance: PREGABALIN
     Dosage: UNK
  4. METFORMIN [Concomitant]
     Active Substance: METFORMIN HYDROCHLORIDE
     Dosage: 500 MG, Q12H
     Route: 065

REACTIONS (29)
  - Spinal cord compression [Recovered/Resolved]
  - Muscular weakness [Recovered/Resolved]
  - Spinal fracture [Not Recovered/Not Resolved]
  - Sensory loss [Not Recovered/Not Resolved]
  - Pain [Unknown]
  - Somnolence [Not Recovered/Not Resolved]
  - Somnolence [Not Recovered/Not Resolved]
  - Spinal disorder [Unknown]
  - Fracture [Unknown]
  - Pulmonary mass [Unknown]
  - Peripheral swelling [Unknown]
  - Sleep disorder [Unknown]
  - Hypoaesthesia [Unknown]
  - Blister [Unknown]
  - Skin swelling [Unknown]
  - Ephelides [Unknown]
  - Rash [Not Recovered/Not Resolved]
  - Blood pressure increased [Not Recovered/Not Resolved]
  - Decreased appetite [Not Recovered/Not Resolved]
  - Weight decreased [Not Recovered/Not Resolved]
  - Acne [Unknown]
  - Skin irritation [Unknown]
  - Adverse event [Unknown]
  - Depression [Unknown]
  - Pruritus [Unknown]
  - Electrocardiogram QT prolonged [Unknown]
  - Dry skin [Unknown]
  - Hospitalisation [Unknown]
  - Therapy interrupted [Unknown]

NARRATIVE: CASE EVENT DATE: 20191013
